FAERS Safety Report 4632681-1 (Version None)
Quarter: 2005Q2

REPORT INFORMATION
  Report Type: 
  Country: None (occurrence: None)
  Receive Date: 20050412
  Receipt Date: 20040512
  Transmission Date: 20051028
  Serious: Yes (Death, Hospitalization)
  Sender: FDA-Public Use
  Company Number: JP-SP-2004-01907

PATIENT
  Age: 83 Year
  Sex: Male

DRUGS (4)
  1. IMMUCYST [Suspect]
     Indication: BLADDER CANCER
     Dosage: 81 MG
     Route: 050
     Dates: start: 20040323, end: 20040504
  2. BROTIZOLAM [Concomitant]
     Dosage: 0,25 MG/DAY
     Route: 048
     Dates: start: 20011025
  3. EVIPROSTAT [Concomitant]
     Dosage: 3 TABS/DAY
     Route: 048
     Dates: start: 20020513
  4. NAFTOPIDIL [Concomitant]
     Dosage: 25MG/DAY
     Route: 048
     Dates: start: 20000120

REACTIONS (3)
  - BLADDER CANCER [None]
  - BOVINE TUBERCULOSIS [None]
  - METASTASES TO LIVER [None]
